FAERS Safety Report 23507466 (Version 2)
Quarter: 2024Q2

REPORT INFORMATION
  Report Type: Spontaneous
  Country: US (occurrence: US)
  Receive Date: 20240209
  Receipt Date: 20240524
  Transmission Date: 20240716
  Serious: No
  Sender: FDA-Public Use
  Company Number: US-SA-SAC20240201000501

PATIENT
  Sex: Female
  Weight: 67 kg

DRUGS (1)
  1. DUPIXENT [Suspect]
     Active Substance: DUPILUMAB
     Indication: Illness
     Dosage: 300 MG, QOW
     Route: 058

REACTIONS (5)
  - Psoriasis [Unknown]
  - Ear discomfort [Unknown]
  - Discomfort [Unknown]
  - Skin burning sensation [Unknown]
  - Product use in unapproved indication [Unknown]
